FAERS Safety Report 14263953 (Version 2)
Quarter: 2018Q1

REPORT INFORMATION
  Report Type: Spontaneous
  Country: US (occurrence: US)
  Receive Date: 20171208
  Receipt Date: 20180307
  Transmission Date: 20180508
  Serious: No
  Sender: FDA-Public Use
  Company Number: US-PTC THERAPEUTICS, INC.-US-2017PTC001368

PATIENT

DRUGS (5)
  1. MULTIVITAMIN                       /00097801/ [Concomitant]
     Active Substance: VITAMINS
     Indication: PRODUCT USED FOR UNKNOWN INDICATION
     Dosage: UNK, QD
  2. VITAMIN B2                         /00154901/ [Concomitant]
     Active Substance: RIBOFLAVIN
     Indication: PRODUCT USED FOR UNKNOWN INDICATION
     Dosage: 1 TABLET, BID
  3. VITAMIN D SUPPORT [Concomitant]
     Active Substance: CHOLECALCIFEROL
     Indication: PRODUCT USED FOR UNKNOWN INDICATION
  4. MAGNESIUM OXIDE. [Concomitant]
     Active Substance: MAGNESIUM OXIDE
     Indication: PRODUCT USED FOR UNKNOWN INDICATION
     Dosage: 400 MG, BID
  5. EMFLAZA [Suspect]
     Active Substance: DEFLAZACORT
     Indication: DUCHENNE MUSCULAR DYSTROPHY
     Dosage: 1.1 MG, QOD
     Route: 048
     Dates: start: 20170930, end: 20171016

REACTIONS (8)
  - Fatigue [Recovered/Resolved]
  - Mood swings [Not Recovered/Not Resolved]
  - Increased appetite [Recovered/Resolved]
  - Disturbance in attention [Recovered/Resolved]
  - Crying [Unknown]
  - Inappropriate schedule of drug administration [Recovered/Resolved]
  - Asthenia [Unknown]
  - Psychomotor hyperactivity [Recovered/Resolved]

NARRATIVE: CASE EVENT DATE: 20170930
